FAERS Safety Report 23794980 (Version 1)
Quarter: 2024Q2

REPORT INFORMATION
  Report Type: Spontaneous
  Country: CN (occurrence: CN)
  Receive Date: 20240429
  Receipt Date: 20240429
  Transmission Date: 20240716
  Serious: Yes (Hospitalization)
  Sender: FDA-Public Use
  Company Number: CN-ARBOR PHARMACEUTICALS, LLC-CN-2024AZR000473

PATIENT
  Age: 59 Year
  Sex: Male

DRUGS (7)
  1. TRIPTODUR [Suspect]
     Active Substance: TRIPTORELIN
     Indication: Product used for unknown indication
     Dosage: UNK
     Route: 065
     Dates: start: 202306, end: 202307
  2. TRIPTODUR [Suspect]
     Active Substance: TRIPTORELIN
     Dosage: UNK
     Route: 065
     Dates: start: 202312, end: 202401
  3. TRIPTODUR [Suspect]
     Active Substance: TRIPTORELIN
  4. TRIPTODUR [Suspect]
     Active Substance: TRIPTORELIN
  5. DAROLUTAMIDE [Suspect]
     Active Substance: DAROLUTAMIDE
     Indication: Product used for unknown indication
     Dosage: UNK
     Route: 065
     Dates: start: 202306, end: 202307
  6. DENOSUMAB [Suspect]
     Active Substance: DENOSUMAB
     Indication: Product used for unknown indication
     Dosage: UNK
     Route: 065
     Dates: start: 202306, end: 202307
  7. OLAPARIB [Suspect]
     Active Substance: OLAPARIB
     Indication: Product used for unknown indication
     Dosage: UNK
     Route: 065
     Dates: start: 202312, end: 202401

REACTIONS (3)
  - Blood alkaline phosphatase [Unknown]
  - Alanine aminotransferase [Unknown]
  - Aspartate aminotransferase [Unknown]
